FAERS Safety Report 6125702-0 (Version None)
Quarter: 2009Q1

REPORT INFORMATION
  Report Type: 
  Country: None (occurrence: None)
  Receive Date: 20090319
  Receipt Date: 20090319
  Transmission Date: 20090719
  Serious: Yes (Hospitalization, Disabling)
  Sender: FDA-Public Use
  Company Number: None

PATIENT
  Age: 62 Year
  Sex: Male
  Weight: 81 kg

DRUGS (18)
  1. LITHIUM CARBONATE [Suspect]
     Indication: BIPOLAR DISORDER
     Dosage: 900 BID PO
     Route: 048
  2. LORATADINE [Concomitant]
  3. NICODERM [Concomitant]
  4. LISINOPRIL [Concomitant]
  5. CLONAZEPAM [Concomitant]
  6. BISACODYL [Concomitant]
  7. LORAZEPAM [Concomitant]
  8. HYDROCHLOROTHIAZIDE [Concomitant]
  9. XALATAN [Concomitant]
  10. RANITIDINE [Concomitant]
  11. METFORMIN [Concomitant]
  12. NOVOLOG [Concomitant]
  13. GLIPIZIDE [Concomitant]
  14. THIAMINE HCL [Concomitant]
  15. LEVAQUIN [Concomitant]
  16. LANTUS [Concomitant]
  17. DEPAKOTE [Concomitant]
  18. CALCIUM POLYCARBOPHIL [Concomitant]

REACTIONS (13)
  - ALCOHOL WITHDRAWAL SYNDROME [None]
  - ANTIPSYCHOTIC DRUG LEVEL INCREASED [None]
  - BACTERIAL INFECTION [None]
  - BLOOD CULTURE POSITIVE [None]
  - CONFUSIONAL STATE [None]
  - DELIRIUM [None]
  - HYPERGLYCAEMIA [None]
  - HYPONATRAEMIA [None]
  - KETOACIDOSIS [None]
  - MULTIPLE DRUG OVERDOSE [None]
  - NEPHROGENIC DIABETES INSIPIDUS [None]
  - PNEUMONIA ASPIRATION [None]
  - SEPSIS [None]
